FAERS Safety Report 8478438 (Version 3)
Quarter: 2012Q4

REPORT INFORMATION
  Report Type: 
  Country: US (occurrence: US)
  Receive Date: 20120327
  Receipt Date: 20121206
  Transmission Date: 20130627
  Serious: Yes (Death)
  Sender: FDA-Public Use
  Company Number: US-GLAXOSMITHKLINE-A0933813A

PATIENT
  Age: 36 Year
  Sex: Male

DRUGS (2)
  1. AVANDIA [Suspect]
     Indication: DIABETES MELLITUS
     Dosage: 8MG Per day
     Route: 048
     Dates: start: 20001127, end: 20031104
  2. AVANDAMET [Suspect]
     Indication: DIABETES MELLITUS
     Route: 048
     Dates: start: 20031104, end: 20041015

REACTIONS (5)
  - Cardiac failure congestive [Fatal]
  - Coronary artery disease [Unknown]
  - Cardiomyopathy [Unknown]
  - Renal failure chronic [Unknown]
  - Lung disorder [Unknown]
